FAERS Safety Report 6924053-1 (Version None)
Quarter: 2010Q3

REPORT INFORMATION
  Report Type: 
  Country: None (occurrence: None)
  Receive Date: 20100813
  Receipt Date: 20100804
  Transmission Date: 20110219
  Serious: Yes (Other)
  Sender: FDA-Public Use
  Company Number: JP-AMGEN-QUU429616

PATIENT
  Age: 70 Year
  Sex: Female

DRUGS (7)
  1. REGPARA [Suspect]
     Indication: HYPERPARATHYROIDISM SECONDARY
     Route: 048
  2. ARANESP [Concomitant]
     Indication: RENAL FAILURE CHRONIC
     Route: 042
  3. OXAROL [Concomitant]
     Route: 042
  4. ARTIST [Concomitant]
     Route: 048
  5. DIOVAN [Concomitant]
     Route: 048
  6. AMLODIPINE BESYLATE [Concomitant]
     Route: 048
  7. GASTER [Concomitant]
     Route: 048

REACTIONS (2)
  - HYPOCALCAEMIA [None]
  - TETANY [None]
